FAERS Safety Report 4815633-8 (Version None)
Quarter: 2005Q4

REPORT INFORMATION
  Report Type: 
  Country: None (occurrence: None)
  Receive Date: 20051027
  Receipt Date: 20051014
  Transmission Date: 20060501
  Serious: Yes (Life-Threatening, Hospitalization)
  Sender: FDA-Public Use
  Company Number: 2005140929

PATIENT
  Age: 66 Year
  Sex: Female

DRUGS (3)
  1. PREVENCOR (ATORVASTATIN) [Suspect]
     Indication: ILL-DEFINED DISORDER
     Dosage: 20 MG (20 MG, 1 IN 1 D), ORAL
     Route: 048
  2. VIOXX [Suspect]
     Indication: OSTEOARTHRITIS
     Dosage: 25 MG (25 MG, 1 IN 1 D), ORAL
     Route: 048
     Dates: start: 20040426, end: 20041001
  3. DISGREN (TRIFLUSAL) [Suspect]
     Indication: CEREBROVASCULAR DISORDER
     Dosage: 300 MG (300 MG, 1 IN 1D), ORAL
     Route: 048

REACTIONS (3)
  - CEREBRAL INFARCTION [None]
  - CEREBROVASCULAR DISORDER [None]
  - DYSLALIA [None]
